FAERS Safety Report 6944876-2 (Version None)
Quarter: 2010Q3

REPORT INFORMATION
  Report Type: 
  Country: None (occurrence: None)
  Receive Date: 20100827
  Receipt Date: 20100817
  Transmission Date: 20110219
  Serious: Yes (Other)
  Sender: FDA-Public Use
  Company Number: JP-BAYER-201014156BYL

PATIENT
  Age: 66 Year
  Sex: Male
  Weight: 53 kg

DRUGS (4)
  1. NEXAVAR [Suspect]
     Indication: HEPATIC NEOPLASM MALIGNANT
     Dosage: TOTAL DAILY DOSE: 800 MG  UNIT DOSE: 200 MG
     Route: 048
     Dates: start: 20100323
  2. NEXAVAR [Suspect]
     Dosage: UNIT DOSE: 200 MG
     Route: 048
     Dates: start: 20100701
  3. URSO 250 [Concomitant]
     Indication: JAUNDICE
     Route: 048
  4. URSO 250 [Concomitant]
     Route: 048

REACTIONS (20)
  - ABDOMINAL PAIN [None]
  - ABDOMINAL PAIN UPPER [None]
  - ALOPECIA [None]
  - CHEILITIS [None]
  - COUGH [None]
  - DEAFNESS [None]
  - DECREASED APPETITE [None]
  - DIARRHOEA [None]
  - FOLLICULITIS [None]
  - GLOSSITIS [None]
  - HAEMOPTYSIS [None]
  - HEADACHE [None]
  - HYPERTHYROIDISM [None]
  - HYPOGLYCAEMIA [None]
  - JAUNDICE [None]
  - PALMAR-PLANTAR ERYTHRODYSAESTHESIA SYNDROME [None]
  - PHARYNGITIS [None]
  - PRURITUS GENERALISED [None]
  - STOMATITIS [None]
  - TINNITUS [None]
